FAERS Safety Report 4884073-8 (Version None)
Quarter: 2006Q1

REPORT INFORMATION
  Report Type: 
  Country: None (occurrence: None)
  Receive Date: 20060118
  Receipt Date: 20050524
  Transmission Date: 20060701
  Serious: Yes (Hospitalization, Disabling)
  Sender: FDA-Public Use
  Company Number: US-MERCK-0505USA02937

PATIENT
  Age: 50 Year
  Sex: Male
  Weight: 79 kg

DRUGS (6)
  1. VIOXX [Suspect]
     Indication: BACK PAIN
     Route: 048
     Dates: start: 20021101, end: 20040810
  2. VIOXX [Suspect]
     Route: 048
     Dates: start: 20021101, end: 20040810
  3. VIOXX [Suspect]
     Indication: CERVICOBRACHIAL SYNDROME
     Route: 048
     Dates: start: 20021101, end: 20040810
  4. VIOXX [Suspect]
     Route: 048
     Dates: start: 20021101, end: 20040810
  5. ADVIL [Concomitant]
     Indication: BACK PAIN
     Route: 048
     Dates: start: 19800101
  6. ADVIL [Concomitant]
     Indication: PAIN
     Route: 048
     Dates: start: 19800101

REACTIONS (18)
  - AMNESIA [None]
  - ANXIETY [None]
  - BLOOD CHOLESTEROL INCREASED [None]
  - BRAIN DAMAGE [None]
  - CARDIAC ARREST [None]
  - CORONARY ARTERY DISEASE [None]
  - DEPRESSION [None]
  - FALL [None]
  - LIGAMENT SPRAIN [None]
  - MYOCARDIAL INFARCTION [None]
  - PERIPHERAL ARTERY DISSECTION [None]
  - RENAL FAILURE ACUTE [None]
  - RENAL TUBULAR NECROSIS [None]
  - RETROPERITONEAL HAEMORRHAGE [None]
  - SYNCOPE [None]
  - VASCULAR PSEUDOANEURYSM [None]
  - VENTRICULAR FIBRILLATION [None]
  - VENTRICULAR TACHYCARDIA [None]
